FAERS Safety Report 8801182 (Version 3)
Quarter: 2013Q1

REPORT INFORMATION
  Report Type: Spontaneous
  Country: US (occurrence: US)
  Receive Date: 20120920
  Receipt Date: 20130128
  Transmission Date: 20140127
  Serious: Yes (Disabling)
  Sender: FDA-Public Use
  Company Number: US-009507513-1209USA007906

PATIENT
  Sex: Female

DRUGS (1)
  1. NASONEX [Suspect]
     Indication: RHINITIS ALLERGIC
     Dosage: 1 TO 2 SPRAYS IN EACH NOSTRIL, QD
     Route: 045
     Dates: start: 201109, end: 201209

REACTIONS (2)
  - Glaucoma [Not Recovered/Not Resolved]
  - Glaucoma surgery [Unknown]
